FAERS Safety Report 10915529 (Version 1)
Quarter: 2015Q1

REPORT INFORMATION
  Report Type: Spontaneous
  Country: US (occurrence: None)
  Receive Date: 20150311
  Receipt Date: 20150311
  Transmission Date: 20150721
  Serious: No
  Sender: FDA-Public Use
  Company Number: None

PATIENT
  Age: 66 Year
  Sex: Female
  Weight: 72.58 kg

DRUGS (18)
  1. METOLAZONE. [Concomitant]
     Active Substance: METOLAZONE
  2. LEVOFLOXACIN. [Suspect]
     Active Substance: LEVOFLOXACIN
     Indication: BRONCHOPNEUMONIA
     Route: 048
     Dates: start: 20121010, end: 20121018
  3. LOSARTAN [Concomitant]
     Active Substance: LOSARTAN
  4. POTASSIUM [Concomitant]
     Active Substance: POTASSIUM
  5. D3 [Concomitant]
     Active Substance: 25-HYDROXYCHOLECALCIFEROL, 5-TRANS-
  6. COENZYME Q10 [Concomitant]
     Active Substance: UBIDECARENONE
  7. TAZTIA XT [Concomitant]
     Active Substance: DILTIAZEM HYDROCHLORIDE
  8. MILK THISTLE [Concomitant]
     Active Substance: MILK THISTLE
  9. METOPROLOL [Concomitant]
     Active Substance: METOPROLOL
  10. ACETYL L-CARNITINE [Concomitant]
  11. ELIQUIS [Concomitant]
     Active Substance: APIXABAN
  12. FOLIC ACID. [Concomitant]
     Active Substance: FOLIC ACID
  13. B-1-2-6-12 [Concomitant]
  14. METFORMIN [Concomitant]
     Active Substance: METFORMIN HYDROCHLORIDE
  15. ATORVASTATIN [Concomitant]
     Active Substance: ATORVASTATIN
  16. CHONDROITIN SULFATE (BOVINE)\GLUCOSAMINE SULFATE [Concomitant]
     Active Substance: CHONDROITIN SULFATE (BOVINE)\GLUCOSAMINE SULFATE
  17. ALPHA LIPOIC ACID [Concomitant]
     Active Substance: .ALPHA.-LIPOIC ACID
  18. CITRACAL CITRATE W/D [Concomitant]

REACTIONS (4)
  - Arthralgia [None]
  - Condition aggravated [None]
  - Neuropathy peripheral [None]
  - Tinnitus [None]

NARRATIVE: CASE EVENT DATE: 20121010
